FAERS Safety Report 22155563 (Version 4)
Quarter: 2025Q1

REPORT INFORMATION
  Report Type: Report from Study
  Country: US (occurrence: US)
  Receive Date: 20230330
  Receipt Date: 20250129
  Transmission Date: 20250408
  Serious: Yes (Other)
  Sender: ABBVIE
  Company Number: US-ABBVIE-4709514

PATIENT
  Age: 81 Year
  Sex: Male
  Weight: 131.54 kg

DRUGS (3)
  1. VENCLEXTA [Suspect]
     Active Substance: VENETOCLAX
     Indication: Chronic lymphocytic leukaemia
     Dosage: 4, 100MG TABLETS IN THE MORNING FORM STRENGTH: 100 MG DURATION TEXT: IN THE MORNING
     Route: 048
     Dates: start: 2021
  2. VENCLEXTA [Suspect]
     Active Substance: VENETOCLAX
     Indication: Chronic lymphocytic leukaemia
     Dosage: FORM STRENGTH: 100 MG TAKE 4 TABLET(S) BY MOUTH ONCE DAILY AFTER A MEAL
     Route: 048
  3. VENCLEXTA [Suspect]
     Active Substance: VENETOCLAX
     Indication: Chronic lymphocytic leukaemia
     Dosage: FORM STRENGTH: 100 MG
     Route: 048

REACTIONS (5)
  - Ear neoplasm malignant [Recovered/Resolved]
  - Shoulder arthroplasty [Unknown]
  - Sciatica [Not Recovered/Not Resolved]
  - Hypoacusis [Unknown]
  - Surgery [Unknown]

NARRATIVE: CASE EVENT DATE: 20220901
